FAERS Safety Report 16196925 (Version 2)
Quarter: 2019Q2

REPORT INFORMATION
  Report Type: Spontaneous
  Country: HR (occurrence: HR)
  Receive Date: 20190415
  Receipt Date: 20190425
  Transmission Date: 20190711
  Serious: Yes (Hospitalization, Other)
  Sender: FDA-Public Use
  Company Number: HR-NOVOPROD-656719

PATIENT
  Age: 15 Year
  Sex: Male
  Weight: 58 kg

DRUGS (7)
  1. NOVOSEVEN [Suspect]
     Active Substance: COAGULATION FACTOR VIIA RECOMBINANT HUMAN
     Dosage: 11TH DAY(4 TIMES 5MG)ONE URINE WAS PINK WITH BLOOD HAEMATOMAS
     Route: 042
     Dates: start: 20190330
  2. NOVOSEVEN [Suspect]
     Active Substance: COAGULATION FACTOR VIIA RECOMBINANT HUMAN
     Dosage: 8TH DAY (3 TIMES 5MG)
     Route: 042
     Dates: start: 20190327
  3. NOVOSEVEN [Suspect]
     Active Substance: COAGULATION FACTOR VIIA RECOMBINANT HUMAN
     Dosage: 9TH DAY (3 TIMES 5MG)
     Route: 042
     Dates: start: 20190328
  4. NOVOSEVEN [Suspect]
     Active Substance: COAGULATION FACTOR VIIA RECOMBINANT HUMAN
     Dosage: 12TH DAY(4 TIMES 5MG)
     Route: 042
     Dates: start: 20190331
  5. NOVOSEVEN [Suspect]
     Active Substance: COAGULATION FACTOR VIIA RECOMBINANT HUMAN
     Indication: FACTOR IX DEFICIENCY
     Dosage: UNK
     Route: 042
  6. NOVOSEVEN [Suspect]
     Active Substance: COAGULATION FACTOR VIIA RECOMBINANT HUMAN
     Indication: FACTOR IX DEFICIENCY
     Dosage: 5TH DAY (2 TIMES 5MG)
     Route: 042
     Dates: start: 20190324
  7. NOVOSEVEN [Suspect]
     Active Substance: COAGULATION FACTOR VIIA RECOMBINANT HUMAN
     Dosage: 10TH DAY (3 TIMES 5MG)
     Route: 042
     Dates: start: 20190329

REACTIONS (3)
  - Haematuria [Unknown]
  - Joint swelling [Recovered/Resolved]
  - Drug ineffective [Recovered/Resolved]

NARRATIVE: CASE EVENT DATE: 20190324
